FAERS Safety Report 8020422-X (Version None)
Quarter: 2012Q1

REPORT INFORMATION
  Report Type: 
  Country: None (occurrence: None)
  Receive Date: 20120103
  Receipt Date: 20111226
  Transmission Date: 20120608
  Serious: Yes (Disabling)
  Sender: FDA-Public Use
  Company Number: BR-SANOFI-AVENTIS-2011SA083754

PATIENT
  Age: 49 Year
  Sex: Female
  Weight: 65 kg

DRUGS (5)
  1. STILNOX CR [Suspect]
     Indication: INSOMNIA
     Route: 048
     Dates: start: 20111201
  2. BUDESONIDE/FORMOTEROL [Concomitant]
     Indication: BRONCHITIS
     Route: 048
  3. FLUOXETINE [Concomitant]
     Indication: DEPRESSION
     Route: 048
     Dates: start: 20040101
  4. OLCADIL [Concomitant]
     Indication: INSOMNIA
     Route: 048
  5. FOLIC ACID [Concomitant]
     Indication: ANAEMIA
     Route: 048
     Dates: start: 20040101

REACTIONS (2)
  - HYPERSENSITIVITY [None]
  - PAIN IN EXTREMITY [None]
